FAERS Safety Report 12417885 (Version 3)
Quarter: 2016Q2

REPORT INFORMATION
  Report Type: Spontaneous
  Country: DK (occurrence: DK)
  Receive Date: 20160531
  Receipt Date: 20160624
  Transmission Date: 20160815
  Serious: Yes (Other)
  Sender: FDA-Public Use
  Company Number: DK-AUROBINDO-AUR-APL-2016-06340

PATIENT
  Sex: Female

DRUGS (2)
  1. OMEPRAZOLE 20MG [Suspect]
     Active Substance: OMEPRAZOLE
     Indication: GASTROOESOPHAGEAL REFLUX DISEASE
     Dosage: 40 MG, TWO TIMES A DAY
     Route: 065
     Dates: end: 20160505
  2. OMEPRAZOLE 20MG [Suspect]
     Active Substance: OMEPRAZOLE
     Indication: VOMITING
     Dosage: 20 MG, UNK
     Route: 065

REACTIONS (4)
  - Dry eye [Not Recovered/Not Resolved]
  - Eye haemorrhage [Not Recovered/Not Resolved]
  - Injury corneal [Not Recovered/Not Resolved]
  - Eye pain [Not Recovered/Not Resolved]
